FAERS Safety Report 4277581-4 (Version None)
Quarter: 2004Q1

REPORT INFORMATION
  Report Type: 
  Country: None (occurrence: None)
  Receive Date: 20040122
  Receipt Date: 20031231
  Transmission Date: 20041129
  Serious: Yes (Disabling)
  Sender: FDA-Public Use
  Company Number: WAES 0401USA01508

PATIENT
  Age: 55 Year
  Sex: Female

DRUGS (3)
  1. [THERAPY UNSPECIFIED] [Concomitant]
  2. ZETIA [Suspect]
     Indication: HYPERLIPIDAEMIA
     Route: 048
     Dates: start: 20030811, end: 20030902
  3. DIOVAN [Concomitant]

REACTIONS (2)
  - LIVER FUNCTION TEST ABNORMAL [None]
  - SWOLLEN TONGUE [None]
